FAERS Safety Report 8492877-8 (Version None)
Quarter: 2012Q3

REPORT INFORMATION
  Report Type: 
  Country: None (occurrence: None)
  Receive Date: 20120706
  Receipt Date: 20120625
  Transmission Date: 20120928
  Serious: Yes (Hospitalization)
  Sender: FDA-Public Use
  Company Number: CA-JNJFOC-20120613048

PATIENT
  Sex: Male
  Weight: 108.86 kg

DRUGS (1)
  1. REMICADE [Suspect]
     Indication: ANKYLOSING SPONDYLITIS
     Dosage: 500 (UNITS UNSPECIFIED)
     Route: 042
     Dates: start: 20051020

REACTIONS (4)
  - PNEUMONIA [None]
  - LOSS OF CONSCIOUSNESS [None]
  - GASTROENTERITIS VIRAL [None]
  - RIB FRACTURE [None]
